FAERS Safety Report 14224381 (Version 1)
Quarter: 2017Q4

REPORT INFORMATION
  Report Type: Spontaneous
  Country: FR (occurrence: FR)
  Receive Date: 20171126
  Receipt Date: 20171126
  Transmission Date: 20180321
  Serious: Yes (Other)
  Sender: FDA-Public Use
  Company Number: FR-MERCK KGAA-2035993

PATIENT
  Age: 79 Year
  Sex: Female

DRUGS (10)
  1. LEVOTHYROX 25 NF [Suspect]
     Active Substance: LEVOTHYROXINE SODIUM
     Route: 048
     Dates: start: 201707
  2. LEVOTHYROX 25 NF [Suspect]
     Active Substance: LEVOTHYROXINE SODIUM
     Route: 048
     Dates: start: 201707
  3. CARDENSIEL [Concomitant]
     Active Substance: BISOPROLOL FUMARATE
  4. DEDROGYL [Concomitant]
     Active Substance: CALCIFEDIOL
  5. STAGID [Concomitant]
     Active Substance: METFORMIN PAMOATE
  6. CATAPRESSAN [Concomitant]
     Active Substance: CLONIDINE
  7. APROVEL [Concomitant]
     Active Substance: IRBESARTAN
  8. NOVOTHYROX [Suspect]
     Active Substance: LEVOTHYROXINE SODIUM
     Indication: HYPOTHYROIDISM
     Route: 048
     Dates: start: 201707
  9. LUMIGAN [Concomitant]
     Active Substance: BIMATOPROST
  10. LEVOTHYROX 50 NF [Suspect]
     Active Substance: LEVOTHYROXINE
     Route: 048
     Dates: start: 201707

REACTIONS (4)
  - Pain in extremity [Not Recovered/Not Resolved]
  - Oedema [Not Recovered/Not Resolved]
  - Thrombophlebitis [Not Recovered/Not Resolved]
  - Muscle spasms [Not Recovered/Not Resolved]

NARRATIVE: CASE EVENT DATE: 201709
